FAERS Safety Report 12402653 (Version 2)
Quarter: 2016Q2

REPORT INFORMATION
  Report Type: Spontaneous
  Country: US (occurrence: US)
  Receive Date: 20160525
  Receipt Date: 20160527
  Transmission Date: 20160815
  Serious: No
  Sender: FDA-Public Use
  Company Number: US-SA-2016SA065897

PATIENT
  Age: 76 Year
  Sex: Female
  Weight: 84.36 kg

DRUGS (4)
  1. RECLAST [Concomitant]
     Active Substance: ZOLEDRONIC ACID
  2. NOVOLOG [Concomitant]
     Active Substance: INSULIN ASPART
     Dosage: DOSE:4 UNIT(S)
  3. LANTUS [Suspect]
     Active Substance: INSULIN GLARGINE
     Dosage: DOSE:12 UNIT(S)
     Route: 065
  4. METFORMIN [Concomitant]
     Active Substance: METFORMIN HYDROCHLORIDE

REACTIONS (13)
  - Protein total decreased [Unknown]
  - Influenza [Unknown]
  - Blood glucose increased [Unknown]
  - Eating disorder [Unknown]
  - Drug dose omission [Unknown]
  - Parathyroid disorder [Unknown]
  - Feeling cold [Unknown]
  - Application site pain [Unknown]
  - Nephropathy [Unknown]
  - Cataract [Unknown]
  - Visual impairment [Unknown]
  - Confusional state [Unknown]
  - Tooth extraction [Unknown]

NARRATIVE: CASE EVENT DATE: 201601
